FAERS Safety Report 6992412-7 (Version None)
Quarter: 2010Q3

REPORT INFORMATION
  Report Type: 
  Country: None (occurrence: None)
  Receive Date: 20100917
  Receipt Date: 20100907
  Transmission Date: 20110219
  Serious: Yes (Other)
  Sender: FDA-Public Use
  Company Number: PHHY2010BE28036

PATIENT
  Age: 15 Year
  Sex: Male
  Weight: 60 kg

DRUGS (3)
  1. RITALIN [Suspect]
     Dosage: 30 MG/DAY
     Route: 048
  2. RILATINE MR [Suspect]
     Dosage: 30 MG DAILY
     Dates: end: 20100501
  3. RILATINE MR [Suspect]
     Dosage: 20 MG DAILY
     Dates: start: 20100501

REACTIONS (2)
  - PALPITATIONS [None]
  - VENTRICULAR EXTRASYSTOLES [None]
